FAERS Safety Report 4668517-2 (Version None)
Quarter: 2005Q2

REPORT INFORMATION
  Report Type: 
  Country: None (occurrence: None)
  Receive Date: 20050518
  Receipt Date: 20050429
  Transmission Date: 20051028
  Serious: Yes (Other)
  Sender: FDA-Public Use
  Company Number: D0046519A

PATIENT
  Age: 70 Year
  Sex: Female
  Weight: 79.8331 kg

DRUGS (6)
  1. ARIXTRA [Suspect]
     Indication: KNEE ARTHROPLASTY
     Dosage: 2.5 MG/PER DAY
     Dates: start: 20050304, end: 20050309
  2. IBUPROFEN [Concomitant]
  3. DIPYRONE [Concomitant]
  4. SERRAPEPTASE [Concomitant]
  5. PANTOPRAZOLE [Concomitant]
  6. PIRITRAMIDE [Concomitant]

REACTIONS (4)
  - DYSPNOEA [None]
  - HAEMATOMA [None]
  - POSTOPERATIVE THROMBOSIS [None]
  - PULMONARY HYPERTENSION [None]
